FAERS Safety Report 7213010-6 (Version None)
Quarter: 2011Q1

REPORT INFORMATION
  Report Type: 
  Country: None (occurrence: None)
  Receive Date: 20110106
  Receipt Date: 20101230
  Transmission Date: 20110831
  Serious: Yes (Other)
  Sender: FDA-Public Use
  Company Number: A0903371A

PATIENT
  Age: 80 Year
  Sex: Male

DRUGS (2)
  1. SERETIDE [Suspect]
     Indication: CHRONIC OBSTRUCTIVE PULMONARY DISEASE
     Dosage: 2000MCG PER DAY
     Route: 055
     Dates: start: 20101001
  2. NO CONCURRENT MEDICATION [Concomitant]

REACTIONS (1)
  - PARESIS [None]
